FAERS Safety Report 6660365-7 (Version None)
Quarter: 2010Q1

REPORT INFORMATION
  Report Type: 
  Country: None (occurrence: None)
  Receive Date: 20100330
  Receipt Date: 20100330
  Transmission Date: 20100710
  Serious: No
  Sender: FDA-Public Use
  Company Number: None

PATIENT
  Age: 77 Year
  Sex: Female
  Weight: 63.5036 kg

DRUGS (1)
  1. NAMENDA [Suspect]

REACTIONS (6)
  - CHEST PAIN [None]
  - CRYING [None]
  - DEPRESSED MOOD [None]
  - DYSPNOEA [None]
  - HEADACHE [None]
  - MEMORY IMPAIRMENT [None]
